FAERS Safety Report 10242510 (Version 4)
Quarter: 2014Q3

REPORT INFORMATION
  Report Type: Spontaneous
  Country: US (occurrence: US)
  Receive Date: 20140617
  Receipt Date: 20140821
  Transmission Date: 20150326
  Serious: Yes (Hospitalization)
  Sender: FDA-Public Use
  Company Number: US-GILEAD-2014-0105671

PATIENT
  Age: 66 Year
  Sex: Female

DRUGS (1)
  1. LETAIRIS [Suspect]
     Active Substance: AMBRISENTAN
     Indication: PRODUCT USED FOR UNKNOWN INDICATION
     Dosage: 10 MG, QD
     Route: 065
     Dates: start: 20131119

REACTIONS (9)
  - Haematoma [Unknown]
  - Peritoneal hernia [Unknown]
  - Femoral hernia [Unknown]
  - Inguinal hernia [Unknown]
  - Infection [Unknown]
  - Hernia [Unknown]
  - Ammonia increased [Unknown]
  - Amnesia [Unknown]
  - Pain [Unknown]

NARRATIVE: CASE EVENT DATE: 20140513
